FAERS Safety Report 6821037-9 (Version None)
Quarter: 2010Q3

REPORT INFORMATION
  Report Type: 
  Country: None (occurrence: None)
  Receive Date: 20100707
  Receipt Date: 20071218
  Transmission Date: 20110219
  Serious: No
  Sender: FDA-Public Use
  Company Number: US-PFIZER INC-2007106739

PATIENT
  Sex: Female
  Weight: 52.16 kg

DRUGS (8)
  1. ZOLOFT [Suspect]
     Indication: CAREGIVER
     Route: 048
     Dates: start: 20050101
  2. DETROL LA [Suspect]
     Indication: POLLAKIURIA
     Route: 048
     Dates: start: 20060101
  3. NEXIUM [Concomitant]
  4. FUROSEMIDE [Concomitant]
  5. COREG [Concomitant]
  6. ALTACE [Concomitant]
  7. MONTELUKAST SODIUM [Concomitant]
  8. ZETIA [Concomitant]

REACTIONS (5)
  - ALOPECIA [None]
  - COELIAC DISEASE [None]
  - DRY SKIN [None]
  - NAIL DISORDER [None]
  - WEIGHT DECREASED [None]
